FAERS Safety Report 10503676 (Version 1)
Quarter: 2014Q4

REPORT INFORMATION
  Report Type: Spontaneous
  Country: IE (occurrence: None)
  Receive Date: 20141003
  Receipt Date: 20141003
  Transmission Date: 20150528
  Serious: Yes (Other)
  Sender: FDA-Public Use
  Company Number: IE-AIKEM-000724

PATIENT
  Age: 82 Year
  Sex: Female

DRUGS (1)
  1. METFORMIN [Suspect]
     Active Substance: METFORMIN HYDROCHLORIDE
     Indication: TYPE 2 DIABETES MELLITUS

REACTIONS (7)
  - Haemolysis [None]
  - Pancytopenia [None]
  - Vitamin B12 deficiency [None]
  - Anaemia macrocytic [None]
  - Confusional state [None]
  - Ataxia [None]
  - Gait disturbance [None]
